FAERS Safety Report 4381713-7 (Version None)
Quarter: 2004Q2

REPORT INFORMATION
  Report Type: 
  Country: None (occurrence: None)
  Receive Date: 20040603
  Receipt Date: 20030716
  Transmission Date: 20050107
  Serious: Yes (Hospitalization)
  Sender: FDA-Public Use
  Company Number: 200316591US

PATIENT
  Sex: Female

DRUGS (4)
  1. ENOXAPARIN SODIUM [Suspect]
     Indication: FACTOR V LEIDEN MUTATION
  2. ENOXAPARIN SODIUM [Suspect]
     Indication: PREGNANCY
  3. ENOXAPARIN SODIUM [Suspect]
     Indication: THROMBOSIS PROPHYLAXIS
  4. CETRIAXONE SODIUM (ROCEPHIN) [Concomitant]

REACTIONS (2)
  - PROTEINURIA [None]
  - PULMONARY EMBOLISM [None]
